FAERS Safety Report 11597278 (Version 1)
Quarter: 2015Q3

REPORT INFORMATION
  Report Type: Spontaneous
  Country: US (occurrence: US)
  Receive Date: 20150916
  Receipt Date: 20150916
  Transmission Date: 20151125
  Serious: No
  Sender: FDA-Public Use
  Company Number: US-ELI_LILLY_AND_COMPANY-US200801006955

PATIENT
  Age: 64 Year
  Sex: Female

DRUGS (11)
  1. FORTEO [Suspect]
     Active Substance: TERIPARATIDE
  2. FORTEO [Suspect]
     Active Substance: TERIPARATIDE
  3. FORTEO [Suspect]
     Active Substance: TERIPARATIDE
  4. FORTEO [Suspect]
     Active Substance: TERIPARATIDE
  5. FORTEO [Suspect]
     Active Substance: TERIPARATIDE
  6. VITAMINS [Concomitant]
     Active Substance: VITAMINS
  7. FORTEO [Suspect]
     Active Substance: TERIPARATIDE
  8. FORTEO [Suspect]
     Active Substance: TERIPARATIDE
  9. FORTEO [Suspect]
     Active Substance: TERIPARATIDE
  10. CALCIUM [Concomitant]
     Active Substance: CALCIUM
  11. FORTEO [Suspect]
     Active Substance: TERIPARATIDE
     Indication: OSTEOPOROSIS
     Dosage: UNK, UNK
     Dates: start: 200612

REACTIONS (4)
  - Injection site pain [Recovered/Resolved]
  - Drug ineffective [Not Recovered/Not Resolved]
  - Injection site pain [Recovering/Resolving]
  - Bone density decreased [Not Recovered/Not Resolved]

NARRATIVE: CASE EVENT DATE: 2007
